FAERS Safety Report 7631539-3 (Version None)
Quarter: 2011Q3

REPORT INFORMATION
  Report Type: 
  Country: None (occurrence: None)
  Receive Date: 20110725
  Receipt Date: 20110720
  Transmission Date: 20111222
  Serious: Yes (Hospitalization, Other)
  Sender: FDA-Public Use
  Company Number: SE-SANOFI-AVENTIS-200917488GDDC

PATIENT
  Age: 80 Year
  Sex: Male
  Weight: 76.2 kg

DRUGS (10)
  1. AFLIBERCEPT [Suspect]
     Dosage: DOSE UNIT: 6 MG/KG
     Route: 042
     Dates: start: 20090630, end: 20090630
  2. CIPROXIN /DEN/ [Concomitant]
     Dosage: DOSE AS USED: UNK
     Dates: start: 20090304
  3. OMEPRAZOLE [Concomitant]
     Dosage: DOSE AS USED: UNK
     Dates: start: 20090205
  4. MEROPENEM [Concomitant]
     Dosage: DOSE AS USED: UNK
     Dates: start: 20090301, end: 20090303
  5. NEULASTA [Concomitant]
     Dosage: DOSE AS USED: UNK
     Dates: start: 20090407
  6. DIFLUCAN [Concomitant]
     Dosage: DOSE AS USED: UNK
     Dates: start: 20090301, end: 20090303
  7. DOCETAXEL [Suspect]
     Dosage: DOSE UNIT: 75 MG/M**2
     Route: 042
     Dates: start: 20090630, end: 20090630
  8. PREDNISONE [Suspect]
     Dosage: DOSE UNIT: 5 MG
     Route: 048
     Dates: start: 20090219, end: 20090730
  9. SUPREFACT [Concomitant]
     Indication: HORMONE REPLACEMENT THERAPY
     Dosage: DOSE AS USED: UNK
     Dates: start: 20080627
  10. ACYCLOVIR [Concomitant]
     Dosage: DOSE AS USED: UNK
     Dates: start: 20090301, end: 20090303

REACTIONS (2)
  - NEPHROTIC SYNDROME [None]
  - CORNEAL EROSION [None]
